FAERS Safety Report 18575390 (Version 1)
Quarter: 2020Q4

REPORT INFORMATION
  Report Type: Spontaneous
  Country: GB (occurrence: GB)
  Receive Date: 20201203
  Receipt Date: 20201203
  Transmission Date: 20210114
  Serious: Yes (Hospitalization, Other)
  Sender: FDA-Public Use
  Company Number: GB-TEVA-2020-GB-1854439

PATIENT
  Age: 38 Year
  Sex: Female

DRUGS (32)
  1. TRASTUZUMAB. [Suspect]
     Active Substance: TRASTUZUMAB
     Indication: BREAST CANCER METASTATIC
     Dosage: 714 UNK
     Route: 042
     Dates: start: 20160202, end: 20161018
  2. ZOMORPH [Concomitant]
     Active Substance: MORPHINE SULFATE
     Indication: PRODUCT USED FOR UNKNOWN INDICATION
     Dosage: 260 MILLIGRAM DAILY; 260 MG, QD
     Route: 048
  3. ANASTROZOLE. [Concomitant]
     Active Substance: ANASTROZOLE
     Indication: PRODUCT USED FOR UNKNOWN INDICATION
     Dosage: 1 MILLIGRAM DAILY; 1 MG, QD (RECOMMENCED ENDOCRINE TREATMENT ON COMPLETION OF CHEMOTHERAPY)
     Route: 048
     Dates: start: 201604
  4. SENNA [Concomitant]
     Active Substance: SENNA LEAF\SENNOSIDES\SENNOSIDES A AND B
     Indication: PRODUCT USED FOR UNKNOWN INDICATION
     Dosage: 7.5 MG, PRN(AS NEEDED)
     Route: 048
  5. DOCETAXEL. [Suspect]
     Active Substance: DOCETAXEL
     Indication: BREAST CANCER METASTATIC
     Dosage: 150 MG, TIW (5 CYCLES)
     Route: 042
     Dates: start: 20151021, end: 20160113
  6. TRASTUZUMAB. [Suspect]
     Active Substance: TRASTUZUMAB
     Dosage: 672 MG, TIW (MAINTENANCE DOSE)
     Route: 042
     Dates: start: 20151110, end: 20160113
  7. ZOLEDRONIC ACID [Concomitant]
     Active Substance: ZOLEDRONIC ACID
     Indication: BREAST CANCER METASTATIC
     Dosage: 4 MG, TIW
     Route: 042
     Dates: start: 20151020
  8. LANSOPRAZOLE. [Concomitant]
     Active Substance: LANSOPRAZOLE
     Indication: PRODUCT USED FOR UNKNOWN INDICATION
     Dosage: 30 MILLIGRAM DAILY; 30 MG, QD
     Route: 048
  9. FUROSEMIDE. [Concomitant]
     Active Substance: FUROSEMIDE
     Indication: PRODUCT USED FOR UNKNOWN INDICATION
     Dosage: 40 MILLIGRAM DAILY; 40 MG, QD
     Route: 048
     Dates: start: 20160504
  10. PERTUZUMAB. [Suspect]
     Active Substance: PERTUZUMAB
     Dosage: 840 MG, UNK(LOADING DOSE)
     Route: 042
     Dates: start: 20151020, end: 20151020
  11. ADCAL D3 [Concomitant]
     Active Substance: CALCIUM CARBONATE\CHOLECALCIFEROL
     Indication: PRODUCT USED FOR UNKNOWN INDICATION
     Dosage: 2 OT, QD
     Route: 048
  12. TRASTUZUMAB. [Suspect]
     Active Substance: TRASTUZUMAB
     Dosage: 903 MG (LOADING DOSE)
     Route: 042
     Dates: start: 20151020, end: 20151020
  13. TRASTUZUMAB. [Suspect]
     Active Substance: TRASTUZUMAB
     Dosage: 903 MG, UNK (LOADING DOSE),THERAPY END DATE : ASKED BUT UNKNOWN
     Route: 042
  14. ZOMORPH [Concomitant]
     Active Substance: MORPHINE SULFATE
     Dosage: 130 MG
     Route: 048
  15. PREDNISOLONE. [Concomitant]
     Active Substance: PREDNISOLONE
     Dosage: 30 MG, UNK
     Route: 048
     Dates: start: 20160801
  16. AMITRIPTYLINE [Concomitant]
     Active Substance: AMITRIPTYLINE
     Indication: PRODUCT USED FOR UNKNOWN INDICATION
     Dosage: 25 MILLIGRAM DAILY; 25 MG, QD
     Route: 048
  17. TRASTUZUMAB. [Suspect]
     Active Substance: TRASTUZUMAB
     Dosage: 714 MG, UNK (INFUSION, SOLUTION),THERAPY START DATE: ASKED BUT UNKNOWN, THERAPY END DATE : ASKED BUT
     Route: 042
  18. TRASTUZUMAB. [Suspect]
     Active Substance: TRASTUZUMAB
     Dosage: 903 MG, UNK(LOADING DOSE,THERAPY START DATE: ASKED BUT UNKNOWN, THERAPY END DATE : ASKED BUT UNKNOWN
     Route: 042
  19. IBUPROFEN. [Concomitant]
     Active Substance: IBUPROFEN
     Dosage: 1200 MILLIGRAM DAILY; 1200 MG, QD
     Route: 048
  20. GOSERELIN [Concomitant]
     Active Substance: GOSERELIN
     Indication: PRODUCT USED FOR UNKNOWN INDICATION
     Dosage: 10.8 MG, Q3MO
     Route: 058
     Dates: start: 20160526
  21. PREDNISOLONE. [Concomitant]
     Active Substance: PREDNISOLONE
     Indication: PRODUCT USED FOR UNKNOWN INDICATION
     Dosage: 10 MG (ON 10MG 17/03/16, STILL REDUCING TO STOP)
     Route: 048
     Dates: start: 2010
  22. DOCUSATE [Concomitant]
     Active Substance: DOCUSATE
     Indication: PRODUCT USED FOR UNKNOWN INDICATION
     Dosage: 100 MG, PRN
     Route: 048
  23. MORPHINE SULFATE. [Concomitant]
     Active Substance: MORPHINE SULFATE
     Indication: PRODUCT USED FOR UNKNOWN INDICATION
     Dosage: 30 MILLIGRAM DAILY; 30 MG, QD (HOURLY PRN)
     Route: 048
  24. PARACETAMOL [Concomitant]
     Active Substance: ACETAMINOPHEN
     Indication: PRODUCT USED FOR UNKNOWN INDICATION
     Dosage: 4 GRAM DAILY; 4 G, QD
     Route: 048
  25. CHLORPHENAMINE [Concomitant]
     Active Substance: CHLORPHENIRAMINE MALEATE
     Indication: PRODUCT USED FOR UNKNOWN INDICATION
     Dosage: 4 MILLIGRAM DAILY; 4 MG, QD
     Route: 048
     Dates: start: 20160426
  26. TRASTUZUMAB. [Suspect]
     Active Substance: TRASTUZUMAB
     Dosage: 598.5 MG, TIW, THERAPY END DATE : ASKED BUT UNKNOWN
     Route: 042
     Dates: start: 20161108
  27. IBUPROFEN. [Concomitant]
     Active Substance: IBUPROFEN
     Indication: PRODUCT USED FOR UNKNOWN INDICATION
     Dosage: 400 MG, TID93 TIMES DAILY PRN)
     Route: 048
  28. GOSERELIN [Concomitant]
     Active Substance: GOSERELIN
     Dosage: 3.6 MG, QMO
     Route: 058
     Dates: end: 20160525
  29. FLUCLOXACILLIN [Concomitant]
     Active Substance: FLUCLOXACILLIN
     Indication: PRODUCT USED FOR UNKNOWN INDICATION
     Dosage: 500 MG, UNK
     Route: 048
     Dates: start: 20160113, end: 20160119
  30. PARACETAMOL [Concomitant]
     Active Substance: ACETAMINOPHEN
     Dosage: 1 GRAM DAILY; 1 G, QD
     Route: 048
  31. PERTUZUMAB. [Suspect]
     Active Substance: PERTUZUMAB
     Indication: BREAST CANCER METASTATIC
     Dosage: MAINTENANCE DOSE,THERAPY END DATE : ASKED BUT UNKNOWN
     Route: 042
     Dates: start: 20151110
  32. SENNA [Concomitant]
     Active Substance: SENNA LEAF\SENNOSIDES\SENNOSIDES A AND B
     Dosage: 7.5 MG, UNK(AS NEEDED)
     Route: 048

REACTIONS (7)
  - Neuropathy peripheral [Recovered/Resolved]
  - Vascular device infection [Recovered/Resolved]
  - Vascular device infection [Recovered/Resolved]
  - Dyspnoea [Recovered/Resolved]
  - Diarrhoea [Recovered/Resolved]
  - Fatigue [Recovered/Resolved]
  - Neurodermatitis [Recovered/Resolved]

NARRATIVE: CASE EVENT DATE: 201601
